FAERS Safety Report 23763644 (Version 1)
Quarter: 2024Q2

REPORT INFORMATION
  Report Type: Spontaneous
  Country: DE (occurrence: DE)
  Receive Date: 20240419
  Receipt Date: 20240419
  Transmission Date: 20240716
  Serious: Yes (Hospitalization)
  Sender: FDA-Public Use
  Company Number: DE-BIOGEN-2024BI01260540

PATIENT
  Age: 32 Year
  Sex: Female

DRUGS (1)
  1. TECFIDERA [Suspect]
     Active Substance: DIMETHYL FUMARATE
     Indication: Multiple sclerosis
     Route: 050
     Dates: start: 202008, end: 2023

REACTIONS (2)
  - Sleeve gastrectomy [Recovered/Resolved]
  - Gastrointestinal procedural complication [Recovered/Resolved]

NARRATIVE: CASE EVENT DATE: 20220901
